FAERS Safety Report 23614194 (Version 1)
Quarter: 2024Q1

REPORT INFORMATION
  Report Type: Report from Study
  Country: FR (occurrence: FR)
  Receive Date: 20240310
  Receipt Date: 20240310
  Transmission Date: 20240410
  Serious: Yes (Other)
  Sender: FDA-Public Use
  Company Number: FR-JNJFOC-20170706975

PATIENT
  Age: 78 Year
  Sex: Male

DRUGS (2)
  1. IMBRUVICA [Suspect]
     Active Substance: IBRUTINIB
     Indication: Chronic lymphocytic leukaemia
     Route: 048
     Dates: start: 20151025
  2. IMBRUVICA [Suspect]
     Active Substance: IBRUTINIB
     Indication: Chronic lymphocytic leukaemia
     Route: 048
     Dates: start: 20161026, end: 20190821

REACTIONS (20)
  - Cataract [Recovered/Resolved]
  - Prostatitis [Recovered/Resolved]
  - Conjunctivitis [Recovered/Resolved]
  - Hypotension [Recovered/Resolved]
  - Skin lesion [Recovered/Resolved]
  - Tracheitis [Recovered/Resolved]
  - Lymphopenia [Recovered/Resolved]
  - Monocyte count decreased [Recovered/Resolved]
  - Rhinorrhoea [Recovered/Resolved]
  - Gamma-glutamyltransferase increased [Recovered/Resolved]
  - Carcinoma in situ of skin [Not Recovered/Not Resolved]
  - Bronchitis [Recovered/Resolved]
  - Oedema peripheral [Recovered/Resolved]
  - Ocular neoplasm [Recovered/Resolved]
  - Diarrhoea [Recovered/Resolved]
  - Haematoma [Recovered/Resolved]
  - Paronychia [Recovered/Resolved]
  - Lacrimation increased [Recovered/Resolved]
  - Hypertension [Recovered/Resolved]
  - Neutrophil count decreased [Recovered/Resolved]

NARRATIVE: CASE EVENT DATE: 20170119
